FAERS Safety Report 5583509-7 (Version None)
Quarter: 2008Q1

REPORT INFORMATION
  Report Type: 
  Country: None (occurrence: None)
  Receive Date: 20080107
  Receipt Date: 20071212
  Transmission Date: 20080703
  Serious: No
  Sender: FDA-Public Use
  Company Number: US-BOEHRINGER INGELHEIM PHARMACEUTICALS, INC.-2007-BP-25167BP

PATIENT
  Sex: Male

DRUGS (10)
  1. SPIRIVA [Suspect]
     Indication: EMPHYSEMA
     Route: 055
     Dates: start: 20050101
  2. ATROVENT HFA [Suspect]
     Indication: EMPHYSEMA
     Route: 055
  3. SINGULAIR [Concomitant]
  4. LOTREL [Concomitant]
  5. ASPIRIN [Concomitant]
  6. LASIX [Concomitant]
  7. VYTORIN [Concomitant]
  8. LORATADINE [Concomitant]
  9. TEKTURNA [Concomitant]
  10. TOPROL-XL [Concomitant]

REACTIONS (3)
  - ACNE [None]
  - PARAESTHESIA [None]
  - RASH [None]
